FAERS Safety Report 5721242-9 (Version None)
Quarter: 2008Q2

REPORT INFORMATION
  Report Type: 
  Country: None (occurrence: None)
  Receive Date: 20080428
  Receipt Date: 20080428
  Transmission Date: 20081010
  Serious: No
  Sender: FDA-Public Use
  Company Number: None

PATIENT
  Age: 76 Year
  Sex: Male

DRUGS (13)
  1. GEMZAR [Suspect]
  2. TARCEVA [Suspect]
  3. ACTOS [Concomitant]
  4. LUPRON [Concomitant]
  5. ENABLEX [Concomitant]
  6. GEMZAR [Concomitant]
  7. INSULIN INSULATARD NPH NORDISK [Concomitant]
  8. ASCORBIC ACID [Concomitant]
  9. VITAMIN B-12 [Concomitant]
  10. MAGNESIUM WITH ZINC [Concomitant]
  11. VITAMIN E [Concomitant]
  12. OXYCONTIN [Concomitant]
  13. AMBIEN [Concomitant]

REACTIONS (3)
  - BALANCE DISORDER [None]
  - CONFUSIONAL STATE [None]
  - GAIT DISTURBANCE [None]
